FAERS Safety Report 8520228-9 (Version None)
Quarter: 2012Q3

REPORT INFORMATION
  Report Type: 
  Country: None (occurrence: None)
  Receive Date: 20120719
  Receipt Date: 20120710
  Transmission Date: 20120928
  Serious: Yes (Hospitalization)
  Sender: FDA-Public Use
  Company Number: US-JNJFOC-20120705006

PATIENT

DRUGS (2)
  1. BLOOD PRESSURE MEDICATION NOS [Suspect]
     Indication: BLOOD PRESSURE
     Route: 065
  2. STELARA [Suspect]
     Indication: PRODUCT USED FOR UNKNOWN INDICATION
     Route: 058

REACTIONS (1)
  - HEART RATE DECREASED [None]
